FAERS Safety Report 20008002 (Version 5)
Quarter: 2022Q3

REPORT INFORMATION
  Report Type: Other
  Country: ES (occurrence: ES)
  Receive Date: 20211028
  Receipt Date: 20220714
  Transmission Date: 20221027
  Serious: Yes (Death, Hospitalization, Other)
  Sender: FDA-Public Use
  Company Number: ES-BIODELIVERY SCIENCES INTERNATIONAL-2021BDSI0490

PATIENT
  Age: 74 Year
  Sex: Female

DRUGS (15)
  1. ONSOLIS [Suspect]
     Active Substance: FENTANYL CITRATE
     Indication: Breakthrough pain
     Dosage: 200 MCG/PRN AS NEEDED, 2 DAILY RESCUES
     Route: 002
     Dates: start: 20210216
  2. ONSOLIS [Suspect]
     Active Substance: FENTANYL CITRATE
     Indication: Sciatica
  3. SERTRALINE [Suspect]
     Active Substance: SERTRALINE HYDROCHLORIDE
     Indication: Adjustment disorder with depressed mood
     Route: 065
     Dates: start: 2021, end: 20210301
  4. PALEXIA [Suspect]
     Active Substance: TAPENTADOL HYDROCHLORIDE
     Indication: Pain
     Route: 048
     Dates: start: 20210216, end: 202103
  5. PALEXIA [Suspect]
     Active Substance: TAPENTADOL HYDROCHLORIDE
     Indication: Sciatica
     Route: 048
     Dates: start: 20201222, end: 20210216
  6. TAPENTADOL [Suspect]
     Active Substance: TAPENTADOL
     Indication: Sciatica
     Dosage: (50 MG EVERY 12 H)
     Route: 065
     Dates: start: 20201222
  7. TAPENTADOL [Suspect]
     Active Substance: TAPENTADOL
     Route: 065
     Dates: start: 2021
  8. TAPENTADOL [Suspect]
     Active Substance: TAPENTADOL
     Dosage: UNKNOWN; UNKNOWN
     Route: 065
  9. METAMIZOLE [Suspect]
     Active Substance: METAMIZOLE
     Indication: Sciatica
     Route: 065
     Dates: start: 20201011, end: 20201222
  10. METAMIZOLE [Suspect]
     Active Substance: METAMIZOLE
     Indication: Pain
     Dosage: UNKNOWN
     Route: 065
     Dates: start: 2020
  11. ACETAMINOPHEN [Concomitant]
     Active Substance: ACETAMINOPHEN
     Indication: Sciatica
     Route: 065
     Dates: start: 2020
  12. OXYCODONE [Concomitant]
     Active Substance: OXYCODONE
     Indication: Product used for unknown indication
     Dosage: UNKNOWN; UNKNOWN
     Route: 065
  13. GABAPENTIN [Concomitant]
     Active Substance: GABAPENTIN
     Indication: Product used for unknown indication
     Dosage: UNKNOWN; UNKNOWN
     Route: 065
     Dates: start: 20210216
  14. OCTREOTIDE [Concomitant]
     Active Substance: OCTREOTIDE
     Indication: Product used for unknown indication
     Dosage: UNKNOWN, UNKNOWN
     Route: 065
  15. FENTANYL [Concomitant]
     Active Substance: FENTANYL
     Indication: Product used for unknown indication
     Dosage: UNKNOWN; UNKNOWN
     Route: 065

REACTIONS (11)
  - Neuroendocrine carcinoma [Fatal]
  - Serotonin syndrome [Recovering/Resolving]
  - Hyperresponsive to stimuli [Recovering/Resolving]
  - Pelvic pain [Unknown]
  - Flushing [Unknown]
  - Vomiting [Unknown]
  - Restlessness [Unknown]
  - Drug interaction [Unknown]
  - Asthenia [Unknown]
  - Decreased appetite [Unknown]
  - Drug ineffective [Unknown]

NARRATIVE: CASE EVENT DATE: 20210101
